FAERS Safety Report 5906388-4 (Version None)
Quarter: 2008Q4

REPORT INFORMATION
  Report Type: 
  Country: None (occurrence: None)
  Receive Date: 20081002
  Receipt Date: 20020129
  Transmission Date: 20090506
  Serious: No
  Sender: FDA-Public Use
  Company Number: US-ABBOTT-08P-163-0450443-00

PATIENT
  Sex: Male

DRUGS (2)
  1. TRICOR [Suspect]
     Indication: DRUG USE FOR UNKNOWN INDICATION
  2. TRICOR [Suspect]

REACTIONS (3)
  - BLOOD TRIGLYCERIDES INCREASED [None]
  - CONSTIPATION [None]
  - MUSCLE SPASMS [None]
